FAERS Safety Report 9781164 (Version 1)
Quarter: 2013Q4

REPORT INFORMATION
  Report Type: Spontaneous
  Country: US (occurrence: None)
  Receive Date: 20131223
  Receipt Date: 20131223
  Transmission Date: 20140711
  Serious: Yes (Life-Threatening, Hospitalization)
  Sender: FDA-Public Use
  Company Number: None

PATIENT
  Age: 59 Year
  Sex: Female
  Weight: 85.28 kg

DRUGS (2)
  1. DOXYCYCLINE [Suspect]
     Indication: BRONCHITIS
     Dosage: DOXYCYCLINE  TWICE DAILY  TAKEN BY MOUTH?3 DOSES
     Route: 048
  2. DOXYCYCLINE [Suspect]
     Indication: SINUSITIS
     Dosage: DOXYCYCLINE  TWICE DAILY  TAKEN BY MOUTH?3 DOSES
     Route: 048

REACTIONS (3)
  - Unresponsive to stimuli [None]
  - Grand mal convulsion [None]
  - Encephalopathy [None]
